FAERS Safety Report 11655008 (Version 1)
Quarter: 2015Q4

REPORT INFORMATION
  Report Type: Spontaneous
  Country: US (occurrence: US)
  Receive Date: 20151023
  Receipt Date: 20151023
  Transmission Date: 20160304
  Serious: Yes (Life-Threatening, Hospitalization, Other)
  Sender: FDA-Public Use
  Company Number: US-ACTAVIS-2015-22738

PATIENT
  Age: 42 Year
  Sex: Male

DRUGS (1)
  1. HYDRALAZINE [Suspect]
     Active Substance: HYDRALAZINE HYDROCHLORIDE
     Indication: HYPERTENSION
     Dosage: 50 MG, BID
     Route: 065

REACTIONS (4)
  - Hepatic failure [Recovered/Resolved]
  - Autoimmune disorder [Recovered/Resolved]
  - Headache [Unknown]
  - Drug-induced liver injury [Recovered/Resolved]
